FAERS Safety Report 4621505-4 (Version None)
Quarter: 2005Q1

REPORT INFORMATION
  Report Type: 
  Country: None (occurrence: None)
  Receive Date: 20050328
  Receipt Date: 20050318
  Transmission Date: 20050727
  Serious: Yes (Life-Threatening, Hospitalization)
  Sender: FDA-Public Use
  Company Number: 6013725

PATIENT
  Age: 12 Year
  Sex: Male

DRUGS (2)
  1. LEVOTHYROX(TABLET) (LEVOTHYROXINE SODIUM) [Suspect]
     Route: 048
  2. GENOTONORM (SOMATROPIN) [Suspect]

REACTIONS (7)
  - ACIDOSIS [None]
  - CARDIAC FAILURE [None]
  - CYTOLYTIC HEPATITIS [None]
  - LEUKOCYTOSIS [None]
  - NEUTROPHIL COUNT INCREASED [None]
  - RENAL FAILURE ACUTE [None]
  - RESPIRATORY DISTRESS [None]
